FAERS Safety Report 9527737 (Version 1)
Quarter: 2013Q1

REPORT INFORMATION
  Report Type: Spontaneous
  Country: US (occurrence: None)
  Receive Date: 20130314
  Receipt Date: 20130314
  Transmission Date: 20140127
  Serious: No
  Sender: FDA-Public Use
  Company Number: 1211USA007677

PATIENT
  Age: 46 Year
  Sex: Female

DRUGS (13)
  1. VICTRELIS (BOCEPREVIR) CAPSULE [Suspect]
     Indication: HEPATITIS C
     Route: 048
  2. RIBASPHERE (RIBAVIRIN) [Suspect]
  3. PEGASYS (PEGINTERFERON ALFA-2A) [Suspect]
  4. PROTONIX (PANTOPRAZOLE SODIUM) [Concomitant]
  5. PLAQUENIL (HYDROXYCHLOROQUINE SULFATE) / ORAL / TABLET, FILM COATED / 200 MILLIGRAM(S) [Concomitant]
  6. GLUCOTROL (GLIPIZIDE) [Concomitant]
  7. METFORMIN (METFORMIN) [Concomitant]
  8. GABAPENTIN (GABAPENTIN) [Concomitant]
  9. WELLBUTRIN (BUPROPION HYDROCHLORIDE) [Concomitant]
  10. FERROUS SULFATE (FERROUS SULFATE) [Concomitant]
  11. ZYRTEC (CETIRIZINE HYDROCHLORIDE) [Concomitant]
  12. CHOLECALCIFEROL (CHOLECALCIFEROL) [Concomitant]
  13. BENTYL (DICYCLOMINE HYDROCHLORIDE) [Concomitant]

REACTIONS (1)
  - Rash pruritic [None]
